FAERS Safety Report 17232989 (Version 1)
Quarter: 2020Q1

REPORT INFORMATION
  Report Type: Report from Study
  Country: None (occurrence: US)
  Receive Date: 20200103
  Receipt Date: 20200103
  Transmission Date: 20200409
  Serious: Yes (Other)
  Sender: FDA-Public Use
  Company Number: US-ABBVIE-19K-163-3211529-00

PATIENT
  Age: 43 Year
  Sex: Female

DRUGS (1)
  1. HUMIRA [Suspect]
     Active Substance: ADALIMUMAB
     Indication: ANKYLOSING SPONDYLITIS
     Route: 058

REACTIONS (9)
  - Stress [Unknown]
  - Cardiac failure [Unknown]
  - Ankylosing spondylitis [Not Recovered/Not Resolved]
  - Herpes zoster [Recovered/Resolved]
  - Renal failure [Unknown]
  - Pneumonia [Recovered/Resolved]
  - Hypothyroidism [Unknown]
  - Pain [Not Recovered/Not Resolved]
  - Device issue [Recovered/Resolved]

NARRATIVE: CASE EVENT DATE: 2019
